FAERS Safety Report 8484082-6 (Version None)
Quarter: 2012Q3

REPORT INFORMATION
  Report Type: 
  Country: None (occurrence: None)
  Receive Date: 20120703
  Receipt Date: 20120622
  Transmission Date: 20120928
  Serious: Yes (Hospitalization)
  Sender: FDA-Public Use
  Company Number: CH-ELI_LILLY_AND_COMPANY-CH201205005678

PATIENT
  Sex: Male

DRUGS (6)
  1. PLAVIX [Concomitant]
     Indication: ANTICOAGULANT THERAPY
  2. MARCUMAR [Concomitant]
     Indication: ANTICOAGULANT THERAPY
  3. ASPIRIN [Concomitant]
     Dosage: UNK, LOADING DOSE
  4. ASPIRIN [Concomitant]
     Dosage: 100 MG, QD
  5. EFFIENT [Suspect]
     Dosage: 10 MG, QD
  6. EFFIENT [Suspect]
     Dosage: 60 MG, LOADING DOSE

REACTIONS (2)
  - THROMBOSIS IN DEVICE [None]
  - ACUTE MYOCARDIAL INFARCTION [None]
